FAERS Safety Report 12714470 (Version 1)
Quarter: 2016Q3

REPORT INFORMATION
  Report Type: Spontaneous
  Country: US (occurrence: US)
  Receive Date: 20160905
  Receipt Date: 20160905
  Transmission Date: 20161109
  Serious: No
  Sender: FDA-Public Use
  Company Number: US-JAZZ-2016-US-008794

PATIENT
  Age: 50 Year
  Sex: Female

DRUGS (23)
  1. ALBUTEROL SULFATE. [Concomitant]
     Active Substance: ALBUTEROL SULFATE
  2. ADDERALL [Concomitant]
     Active Substance: AMPHETAMINE ASPARTATE\AMPHETAMINE SULFATE\DEXTROAMPHETAMINE SACCHARATE\DEXTROAMPHETAMINE SULFATE
  3. LIDODERM [Concomitant]
     Active Substance: LIDOCAINE
  4. PAXIL [Concomitant]
     Active Substance: PAROXETINE HYDROCHLORIDE
  5. VITAMIN C [Concomitant]
     Active Substance: ASCORBIC ACID
  6. XYREM [Suspect]
     Active Substance: SODIUM OXYBATE
     Indication: CATAPLEXY
     Dosage: DOSE ADJUSTMENTS
     Route: 048
  7. MINOCYCLINE [Concomitant]
     Active Substance: MINOCYCLINE\MINOCYCLINE HYDROCHLORIDE
  8. CORTISONE ACETATE. [Concomitant]
     Active Substance: CORTISONE ACETATE
  9. GABAPENTIN. [Concomitant]
     Active Substance: GABAPENTIN
  10. NEURONTIN [Concomitant]
     Active Substance: GABAPENTIN
  11. PROBIOTIC ACIDOPHILUS [Concomitant]
     Active Substance: LACTOBACILLUS ACIDOPHILUS
  12. WORMWOOD [Concomitant]
     Active Substance: WORMWOOD
  13. XYREM [Suspect]
     Active Substance: SODIUM OXYBATE
     Dosage: 3 G, BID
     Route: 048
     Dates: start: 201603
  14. LEXAPRO [Concomitant]
     Active Substance: ESCITALOPRAM OXALATE
  15. ACYCLOVIR. [Concomitant]
     Active Substance: ACYCLOVIR
  16. COQ10 [Concomitant]
     Active Substance: UBIDECARENONE
  17. ESTRATEST [Concomitant]
     Active Substance: ESTROGENS, ESTERIFIED\METHYLTESTOSTERONE
  18. CALCIUM +D [Concomitant]
     Active Substance: CALCIUM\VITAMIN D
  19. XYREM [Suspect]
     Active Substance: SODIUM OXYBATE
     Indication: NARCOLEPSY
     Dosage: 2.25 G, BID
     Route: 048
     Dates: start: 201501, end: 201502
  20. SINGULAIR [Concomitant]
     Active Substance: MONTELUKAST SODIUM
  21. BREO ELLIPTA [Concomitant]
     Active Substance: FLUTICASONE FUROATE\VILANTEROL TRIFENATATE
  22. BIOTIN [Concomitant]
     Active Substance: BIOTIN
  23. NUVIGIL [Concomitant]
     Active Substance: ARMODAFINIL

REACTIONS (5)
  - Cardiac murmur [Unknown]
  - Pain [Not Recovered/Not Resolved]
  - Blood immunoglobulin E increased [Unknown]
  - Antinuclear antibody increased [Unknown]
  - C-reactive protein increased [Unknown]

NARRATIVE: CASE EVENT DATE: 201512
